FAERS Safety Report 4486927-3 (Version None)
Quarter: 2004Q3

REPORT INFORMATION
  Report Type: 
  Country: None (occurrence: None)
  Receive Date: 20040921
  Receipt Date: 20031009
  Transmission Date: 20050211
  Serious: No
  Sender: FDA-Public Use
  Company Number: 163-20785-03100241

PATIENT
  Sex: Female

DRUGS (7)
  1. THALOMID [Suspect]
     Indication: GLIOBLASTOMA MULTIFORME
     Dosage: 350 MG, QHS, ORAL
     Route: 048
     Dates: start: 20010901
  2. TEMODAR [Suspect]
     Indication: GLIOBLASTOMA MULTIFORME
     Dosage: 200 MG/M2 D1-5, ORAL
     Route: 048
     Dates: start: 20010901, end: 20011020
  3. CELEBREX [Suspect]
     Indication: GLIOBLASTOMA MULTIFORME
     Dosage: 400 MG, BID, ORAL
     Route: 048
     Dates: start: 20010901, end: 20011112
  4. DECADRON [Concomitant]
  5. DILANTIN [Concomitant]
  6. ZANTAC [Concomitant]
  7. BACTRIM [Concomitant]

REACTIONS (3)
  - LEUKOPENIA [None]
  - NEUTROPENIA [None]
  - THROMBOCYTOPENIA [None]
